FAERS Safety Report 19321490 (Version 1)
Quarter: 2021Q2

REPORT INFORMATION
  Report Type: Spontaneous
  Country: FI (occurrence: FI)
  Receive Date: 20210528
  Receipt Date: 20210528
  Transmission Date: 20210717
  Serious: Yes (Death, Other)
  Sender: FDA-Public Use
  Company Number: FI-009507513-2105FIN001214

PATIENT
  Age: 13 Year
  Sex: Male

DRUGS (1)
  1. TEMOZOLOMIDE. [Suspect]
     Active Substance: TEMOZOLOMIDE
     Indication: MALIGNANT MELANOMA
     Dosage: AS 5 DAYS CYCLES EVERY 4 WEEKS

REACTIONS (6)
  - Disease recurrence [Unknown]
  - Chest wall tumour [Unknown]
  - Product use in unapproved indication [Unknown]
  - Product use issue [Unknown]
  - Lung neoplasm [Unknown]
  - Death [Fatal]

NARRATIVE: CASE EVENT DATE: 20061024
